FAERS Safety Report 19032401 (Version 2)
Quarter: 2021Q2

REPORT INFORMATION
  Report Type: Spontaneous
  Country: JP (occurrence: JP)
  Receive Date: 20210319
  Receipt Date: 20210406
  Transmission Date: 20210717
  Serious: Yes (Death)
  Sender: FDA-Public Use
  Company Number: JP-GILEAD-2021-0521742

PATIENT
  Age: 100 Year
  Sex: Female
  Weight: 29.1 kg

DRUGS (13)
  1. HEPARIN CA [Concomitant]
     Active Substance: HEPARIN CALCIUM
     Indication: COVID-19
     Dosage: 5000 IU, BID
     Route: 058
     Dates: start: 20210203, end: 20210208
  2. CEFTRIAXONE SODIUM. [Suspect]
     Active Substance: CEFTRIAXONE SODIUM
     Indication: PNEUMONIA ASPIRATION
     Dosage: UNK
     Route: 042
     Dates: start: 20210126, end: 20210201
  3. LASIX [Suspect]
     Active Substance: FUROSEMIDE
     Indication: PRODUCT USED FOR UNKNOWN INDICATION
     Dosage: UNK
     Route: 048
  4. VEKLURY [Suspect]
     Active Substance: REMDESIVIR
     Indication: COVID-19
     Dosage: 200 MG, QD
     Route: 041
     Dates: start: 20210203, end: 20210203
  5. SPIRONOLACTONE. [Suspect]
     Active Substance: SPIRONOLACTONE
     Indication: PRODUCT USED FOR UNKNOWN INDICATION
     Dosage: UNK
     Route: 048
  6. VEKLURY [Suspect]
     Active Substance: REMDESIVIR
     Dosage: 100 MG, QD
     Route: 041
     Dates: start: 20210204, end: 20210207
  7. OMEPRAZOLE [OMEPRAZOLE SODIUM] [Suspect]
     Active Substance: OMEPRAZOLE SODIUM
     Indication: COVID-19
     Dosage: 20 MG, BID
     Route: 042
     Dates: start: 20210204, end: 20210209
  8. ASPARA K [Suspect]
     Active Substance: POTASSIUM ASPARTATE
     Indication: PRODUCT USED FOR UNKNOWN INDICATION
     Dosage: UNK
     Route: 048
  9. TRIAZOLAM. [Suspect]
     Active Substance: TRIAZOLAM
     Indication: PRODUCT USED FOR UNKNOWN INDICATION
     Dosage: UNK
     Route: 048
  10. BELSOMRA [Suspect]
     Active Substance: SUVOREXANT
     Indication: PRODUCT USED FOR UNKNOWN INDICATION
     Dosage: UNK
     Route: 048
  11. CONTOMIN [CHLORPROMAZINE HIBENZATE] [Concomitant]
     Active Substance: CHLORPROMAZINE HIBENZATE
     Dosage: UNK
     Dates: end: 20210125
  12. SODIUM CHLORIDE. [Concomitant]
     Active Substance: SODIUM CHLORIDE
     Dosage: UNK
     Dates: end: 20210125
  13. DEXART [Concomitant]
     Active Substance: DEXAMETHASONE SODIUM PHOSPHATE
     Indication: COVID-19
     Dosage: 6.6 MG, QD
     Route: 041
     Dates: start: 20210203, end: 20210209

REACTIONS (2)
  - COVID-19 [Fatal]
  - Hepatic function abnormal [Not Recovered/Not Resolved]

NARRATIVE: CASE EVENT DATE: 20210208
